FAERS Safety Report 10636093 (Version 2)
Quarter: 2015Q1

REPORT INFORMATION
  Report Type: Spontaneous
  Country: FR (occurrence: FR)
  Receive Date: 20141205
  Receipt Date: 20150217
  Transmission Date: 20150720
  Serious: Yes (Hospitalization, Other)
  Sender: FDA-Public Use
  Company Number: FR-ASTRAZENECA-2014SE91803

PATIENT
  Age: 54 Year
  Sex: Female

DRUGS (13)
  1. CYCLOPHOSPHAMIDE. [Suspect]
     Active Substance: CYCLOPHOSPHAMIDE
     Indication: BREAST CANCER
     Route: 042
     Dates: start: 20050623, end: 20051030
  2. LERCANIDIPINE [Concomitant]
     Active Substance: LERCANIDIPINE
  3. QUESTRAN [Concomitant]
     Active Substance: CHOLESTYRAMINE
  4. CORDARONE [Concomitant]
     Active Substance: AMIODARONE HYDROCHLORIDE
  5. RAMIPRIL. [Concomitant]
     Active Substance: RAMIPRIL
  6. ARIMIDEX [Suspect]
     Active Substance: ANASTROZOLE
     Indication: BREAST CANCER
     Route: 048
     Dates: start: 200601, end: 201101
  7. EPIRUBICINE [Suspect]
     Active Substance: EPIRUBICIN
     Indication: BREAST CANCER
     Dosage: 600 MG/M2
     Route: 042
     Dates: start: 20050623, end: 20051030
  8. PREVISCAN [Concomitant]
     Active Substance: FLUINDIONE
  9. LASILIX [Concomitant]
     Active Substance: FUROSEMIDE
  10. CORGARD [Concomitant]
     Active Substance: NADOLOL
  11. EFFEXOR [Concomitant]
     Active Substance: VENLAFAXINE HYDROCHLORIDE
     Dosage: 75 MG 2 DOSE EVERY MORNING AND 1 DOSE EVERY EVENING
  12. FLUOROURACILE [Suspect]
     Active Substance: FLUOROURACIL
     Indication: BREAST CANCER
     Route: 042
     Dates: start: 20050623, end: 20051030
  13. LEVOTHYROX [Concomitant]
     Active Substance: LEVOTHYROXINE
     Dosage: 100 UG PER DAY AND 25 UG PER DAY

REACTIONS (7)
  - Atrial fibrillation [Recovered/Resolved]
  - Ejection fraction decreased [Recovered/Resolved]
  - Cardiomyopathy [Unknown]
  - Heart rate decreased [Unknown]
  - Cardiac failure acute [Unknown]
  - Acute pulmonary oedema [Unknown]
  - Arrhythmia [Recovered/Resolved]

NARRATIVE: CASE EVENT DATE: 2005
